FAERS Safety Report 7039962-5 (Version None)
Quarter: 2010Q4

REPORT INFORMATION
  Report Type: 
  Country: None (occurrence: None)
  Receive Date: 20101012
  Receipt Date: 20101005
  Transmission Date: 20110411
  Serious: Yes (Other)
  Sender: FDA-Public Use
  Company Number: RU-ROCHE-698798

PATIENT
  Sex: Male
  Weight: 90 kg

DRUGS (5)
  1. TOCILIZUMAB [Suspect]
     Indication: RHEUMATOID ARTHRITIS
     Route: 042
     Dates: start: 20091130
  2. TOCILIZUMAB [Suspect]
     Dosage: FREQUENCY: 1 TIMES OF, LAST DOSE PRIOR TO SAE 24 MARCH 2010, THERAPY PERMANENTLY DISCONTINUED
     Route: 042
     Dates: end: 20100421
  3. METHOTREXATE [Suspect]
     Indication: RHEUMATOID ARTHRITIS
     Dosage: FORM AND ROUTE PER PROTOCOL
     Route: 048
     Dates: start: 20090307, end: 20100421
  4. DICLOFENAC SODIUM [Concomitant]
     Dates: start: 20071113
  5. FOLIC ACID [Concomitant]
     Dates: start: 20090310

REACTIONS (1)
  - GLIOBLASTOMA [None]
